FAERS Safety Report 4273490-5 (Version None)
Quarter: 2004Q1

REPORT INFORMATION
  Report Type: 
  Country: None (occurrence: None)
  Receive Date: 20040119
  Receipt Date: 20040116
  Transmission Date: 20041129
  Serious: Yes (Hospitalization)
  Sender: FDA-Public Use
  Company Number: US-GLAXOSMITHKLINE-A0493519A

PATIENT
  Age: 65 Year
  Sex: Male

DRUGS (2)
  1. MELPHALAN [Suspect]
     Indication: MULTIPLE MYELOMA
     Route: 042
     Dates: start: 20031207
  2. THALIDOMIDE [Suspect]
     Indication: MULTIPLE MYELOMA
     Route: 048
     Dates: start: 20031114, end: 20031206

REACTIONS (4)
  - MUCOSAL INFLAMMATION [None]
  - PNEUMONIA [None]
  - PYREXIA [None]
  - SINUSITIS [None]
